FAERS Safety Report 10814088 (Version 1)
Quarter: 2015Q1

REPORT INFORMATION
  Report Type: Report from Study
  Country: US (occurrence: US)
  Receive Date: 20150218
  Receipt Date: 20150218
  Transmission Date: 20150721
  Serious: No
  Sender: FDA-Public Use
  Company Number: US-ABBVIE-14K-163-1280220-00

PATIENT
  Age: 10 Year
  Sex: Female
  Weight: 51.3 kg

DRUGS (3)
  1. HUMIRA [Suspect]
     Active Substance: ADALIMUMAB
     Indication: OFF LABEL USE
     Dates: start: 201407
  2. HUMIRA [Suspect]
     Active Substance: ADALIMUMAB
     Indication: UVEITIS
     Dates: start: 201207, end: 201402
  3. METHOTREXATE [Concomitant]
     Active Substance: METHOTREXATE
     Indication: UVEITIS

REACTIONS (3)
  - Rash [Not Recovered/Not Resolved]
  - Off label use [Not Recovered/Not Resolved]
  - Headache [Recovered/Resolved]

NARRATIVE: CASE EVENT DATE: 201207
